FAERS Safety Report 7266368-6 (Version None)
Quarter: 2011Q1

REPORT INFORMATION
  Report Type: 
  Country: None (occurrence: None)
  Receive Date: 20110131
  Receipt Date: 20110124
  Transmission Date: 20110831
  Serious: Yes (Hospitalization)
  Sender: FDA-Public Use
  Company Number: US-US-EMD SERONO, INC.-230232J10USA

PATIENT
  Sex: Female

DRUGS (17)
  1. ANTIBIOTICS [Concomitant]
     Indication: INJECTION SITE INFECTION
     Dates: start: 20080101
  2. IMITREX [Concomitant]
     Indication: MIGRAINE
     Route: 048
  3. IMITREX [Concomitant]
     Route: 048
  4. REBIF [Suspect]
     Route: 058
     Dates: start: 20101001
  5. BACLOFEN [Concomitant]
     Indication: MUSCLE SPASTICITY
  6. PREDNISONE [Concomitant]
  7. REBIF [Suspect]
     Indication: MULTIPLE SCLEROSIS
     Route: 058
     Dates: start: 20030618
  8. REBIF [Suspect]
     Route: 058
     Dates: start: 20101208
  9. REGLAN [Concomitant]
  10. TRAMADOL HCL [Concomitant]
  11. FOLIC ACID [Concomitant]
  12. REBIF [Suspect]
     Route: 058
     Dates: end: 20100702
  13. PROTONIX [Concomitant]
  14. ADDERALL 10 [Concomitant]
     Indication: FATIGUE
     Route: 048
  15. ADDERALL 10 [Concomitant]
     Indication: ATTENTION DEFICIT/HYPERACTIVITY DISORDER
  16. REBIF [Suspect]
     Route: 058
     Dates: start: 20100723, end: 20101001
  17. VITAMIN D [Concomitant]

REACTIONS (7)
  - INTESTINAL FUNCTIONAL DISORDER [None]
  - WEIGHT DECREASED [None]
  - FATIGUE [None]
  - WHITE BLOOD CELL COUNT DECREASED [None]
  - ANAEMIA [None]
  - GASTRIC ULCER HAEMORRHAGE [None]
  - HAEMORRHAGE [None]
